FAERS Safety Report 5532729-6 (Version None)
Quarter: 2007Q4

REPORT INFORMATION
  Report Type: 
  Country: None (occurrence: None)
  Receive Date: 20071128
  Receipt Date: 20071120
  Transmission Date: 20080405
  Serious: Yes (Hospitalization)
  Sender: FDA-Public Use
  Company Number: 2007BI022495

PATIENT
  Age: 54 Year
  Sex: Female

DRUGS (2)
  1. NATALIZUMAB [Suspect]
     Indication: MULTIPLE SCLEROSIS
     Dosage: 300 MG; QM; IV
     Route: 042
     Dates: start: 20061003, end: 20071004
  2. AVONEX [Concomitant]

REACTIONS (7)
  - ASTHMA [None]
  - DEPRESSION [None]
  - EYE PAIN [None]
  - LUMBAR SPINAL STENOSIS [None]
  - MIGRAINE [None]
  - MULTIPLE SCLEROSIS [None]
  - PAIN [None]
